FAERS Safety Report 4540626-8 (Version None)
Quarter: 2004Q4

REPORT INFORMATION
  Report Type: 
  Country: None (occurrence: None)
  Receive Date: 20041222
  Receipt Date: 20041209
  Transmission Date: 20050328
  Serious: Yes (Hospitalization)
  Sender: FDA-Public Use
  Company Number: 2004IM000991

PATIENT
  Age: 65 Year
  Sex: Male

DRUGS (2)
  1. INFERAX (INTERFERON ALFACON-1) [Suspect]
     Indication: HEPATITIS C
     Dosage: 9 UG; QD; SUBCUTANEOUS
     Route: 058
     Dates: start: 20040324, end: 20041130
  2. RIBAVIRIN [Suspect]
     Indication: HEPATITIS C
     Dosage: 800 MG; QD; ORAL
     Route: 048

REACTIONS (6)
  - ASTHENIA [None]
  - CITROBACTER INFECTION [None]
  - DISTURBANCE IN ATTENTION [None]
  - EATING DISORDER [None]
  - FLUID INTAKE REDUCED [None]
  - URINARY TRACT INFECTION [None]
